FAERS Safety Report 16976781 (Version 2)
Quarter: 2019Q4

REPORT INFORMATION
  Report Type: Spontaneous
  Country: US (occurrence: US)
  Receive Date: 20191030
  Receipt Date: 20191216
  Transmission Date: 20200122
  Serious: Yes (Other)
  Sender: FDA-Public Use
  Company Number: US-REGENERON PHARMACEUTICALS, INC.-2019-62837

PATIENT

DRUGS (2)
  1. EYLEA [Suspect]
     Active Substance: AFLIBERCEPT
     Indication: NEOVASCULAR AGE-RELATED MACULAR DEGENERATION
     Dosage: RIGHT EYE, Q1MON. TOTALL OF 30 INJECTIONS RECEIVED
     Route: 031
     Dates: start: 2017
  2. EYLEA [Suspect]
     Active Substance: AFLIBERCEPT
     Dosage: UNK

REACTIONS (2)
  - Scleral disorder [Unknown]
  - Blindness unilateral [Unknown]
